FAERS Safety Report 19963163 (Version 2)
Quarter: 2022Q1

REPORT INFORMATION
  Report Type: Report from Study
  Country: US (occurrence: None)
  Receive Date: 20211018
  Receipt Date: 20220117
  Transmission Date: 20220423
  Serious: Yes (Hospitalization)
  Sender: FDA-Public Use
  Company Number: US-ROCHE-2931226

PATIENT
  Age: 72 Year
  Sex: Female
  Weight: 72.2 kg

DRUGS (4)
  1. ATEZOLIZUMAB [Suspect]
     Active Substance: ATEZOLIZUMAB
     Indication: Adenocarcinoma of colon
     Dosage: ON 27/FEB/2019, SHE RECEIVED MOST RECENT DOSE OF ATEZOLIZUMAB PRIOR TO THE EVENT.?TOTAL DOSE: 840 MG
     Route: 041
     Dates: start: 20190114
  2. FLUOROURACIL [Suspect]
     Active Substance: FLUOROURACIL
     Indication: Adenocarcinoma of colon
     Dosage: 400MG/M2 IV (BOLUS) ON DAY 1 FOLLOWED BY 2400MG/M2 IV OVER 46 HOURS DAYS 1-3?ON 27/FEB/2019, SHE REC
     Route: 040
     Dates: start: 20190114
  3. OXALIPLATIN [Suspect]
     Active Substance: OXALIPLATIN
     Indication: Adenocarcinoma of colon
     Dosage: TOTAL DOSE ADMINISTERED: 153 MG?ON 27/FEB/2019, SHE RECEIVED MOST RECENT DOSE OF OXALIPLATIN PRIOR T
     Route: 042
     Dates: start: 20190114
  4. LEUCOVORIN CALCIUM [Suspect]
     Active Substance: LEUCOVORIN CALCIUM
     Indication: Adenocarcinoma of colon
     Dosage: TOTAL DOSE ADMINISTERED: 720 MG?ON 27/FEB/2019, SHE RECEIVED MOST RECENT DOSE OF LEUCOVORIN CALCIUM
     Route: 042
     Dates: start: 20190114

REACTIONS (1)
  - Pyrexia [Recovered/Resolved]

NARRATIVE: CASE EVENT DATE: 20190228
